FAERS Safety Report 11090503 (Version 1)
Quarter: 2015Q2

REPORT INFORMATION
  Report Type: Spontaneous
  Country: TR (occurrence: None)
  Receive Date: 20150501
  Receipt Date: 20150501
  Transmission Date: 20150821
  Serious: No
  Sender: FDA-Public Use
  Company Number: PR7849

PATIENT
  Age: 3 Month
  Sex: Female

DRUGS (2)
  1. PHENYLEPHRINE HYDROCHLORIDE. [Suspect]
     Active Substance: PHENYLEPHRINE HYDROCHLORIDE
     Dosage: EACH EYE
  2. CYCLOPENTOLATE HYDROCHLORIDE 0.5% [Suspect]
     Active Substance: CYCLOPENTOLATE HYDROCHLORIDE
     Dosage: EACH EYE

REACTIONS (1)
  - Seizure [None]
